FAERS Safety Report 14028416 (Version 1)
Quarter: 2017Q3

REPORT INFORMATION
  Report Type: Report from Study
  Country: CA (occurrence: CA)
  Receive Date: 20170930
  Receipt Date: 20170930
  Transmission Date: 20171128
  Serious: Yes (Other)
  Sender: FDA-Public Use
  Company Number: CA-B.I. PHARMACEUTICALS,INC./RIDGEFIELD-2017-BI-052495

PATIENT
  Age: 38 Year
  Sex: Female

DRUGS (2)
  1. GILOTRIF [Suspect]
     Active Substance: AFATINIB
     Indication: CHOLANGIOCARCINOMA
     Route: 048
  2. GILOTRIF [Suspect]
     Active Substance: AFATINIB
     Route: 048

REACTIONS (3)
  - Rash [Unknown]
  - Metastasis [Unknown]
  - Diarrhoea [Unknown]
